FAERS Safety Report 18952521 (Version 2)
Quarter: 2021Q1

REPORT INFORMATION
  Report Type: Spontaneous
  Country: US (occurrence: US)
  Receive Date: 20210301
  Receipt Date: 20210304
  Transmission Date: 20210420
  Serious: No
  Sender: FDA-Public Use
  Company Number: US-SA-2021SA064790

PATIENT

DRUGS (1)
  1. SELSUN BLUE 2?IN?1 [Suspect]
     Active Substance: SELENIUM SULFIDE
     Dosage: UNK

REACTIONS (1)
  - Drug ineffective [Unknown]
